FAERS Safety Report 8804125 (Version 2)
Quarter: 2012Q4

REPORT INFORMATION
  Report Type: 
  Country: DE (occurrence: DE)
  Receive Date: 20120924
  Receipt Date: 20121026
  Transmission Date: 20130627
  Serious: Yes (Other)
  Sender: FDA-Public Use
  Company Number: DE-GLAXOSMITHKLINE-D0077092A

PATIENT
  Sex: Female

DRUGS (2)
  1. REQUIP-MODUTAB [Suspect]
     Indication: PARKINSON^S DISEASE
     Route: 048
     Dates: start: 200804
  2. CARBIDOPA + LEVODOPA [Concomitant]
     Indication: PARKINSON^S DISEASE
     Dosage: 125MG Three times per day
     Route: 048

REACTIONS (1)
  - Thrombocytosis [Not Recovered/Not Resolved]
